FAERS Safety Report 25939673 (Version 4)
Quarter: 2025Q4

REPORT INFORMATION
  Report Type: Report from Study
  Country: EU (occurrence: EU)
  Receive Date: 20251020
  Receipt Date: 20251105
  Transmission Date: 20260118
  Serious: Yes (Hospitalization, Other)
  Sender: CELLTRION
  Company Number: EU-ABBVIE-6482818

PATIENT

DRUGS (24)
  1. INFLIXIMAB [Suspect]
     Active Substance: INFLIXIMAB
     Indication: Colitis ulcerative
     Dosage: UNK
  2. INFLIXIMAB [Suspect]
     Active Substance: INFLIXIMAB
     Dosage: SUBSEQUENT HIGH-DOSE RE-INDUCTION
  3. ADALIMUMAB [Suspect]
     Active Substance: ADALIMUMAB
     Indication: Colitis ulcerative
     Dosage: UNK
     Route: 058
  4. ADALIMUMAB [Suspect]
     Active Substance: ADALIMUMAB
     Dosage: ADDITIONAL INFORMATION ON DRUG DOSAGE1: UNIT=NOT AVAILABLE
     Route: 065
  5. USTEKINUMAB [Suspect]
     Active Substance: USTEKINUMAB
     Indication: Colitis ulcerative
     Dosage: UNK (DOSAGE1: UNIT=NOT AVAILABLE)
     Route: 065
  6. VEDOLIZUMAB [Suspect]
     Active Substance: VEDOLIZUMAB
     Indication: Colitis ulcerative
     Dosage: UNK
  7. UPADACITINIB [Suspect]
     Active Substance: UPADACITINIB
     Indication: Salvage therapy
     Dosage: 45 MG ORALLY ONCE DAILY / 45 MILLIGRAM, QD
     Route: 048
  8. UPADACITINIB [Suspect]
     Active Substance: UPADACITINIB
     Indication: Colitis ulcerative
     Dosage: 30 MG DAILY / 30 MILLIGRAM, QD
     Route: 048
  9. UPADACITINIB [Suspect]
     Active Substance: UPADACITINIB
     Dosage: 45 MG ORALLY ONCE DAILY / 45 MILLIGRAM, QD
     Route: 048
  10. MESALAMINE [Suspect]
     Active Substance: MESALAMINE
     Indication: Colitis ulcerative
     Dosage: UNK
     Route: 048
  11. MESALAMINE [Suspect]
     Active Substance: MESALAMINE
     Dosage: UNK
     Route: 048
  12. ENTYVIO [Suspect]
     Active Substance: VEDOLIZUMAB
     Indication: Colitis ulcerative
     Dosage: UNK
     Route: 065
  13. ENTYVIO [Suspect]
     Active Substance: VEDOLIZUMAB
     Dosage: UNK
     Route: 065
  14. TACROLIMUS [Concomitant]
     Active Substance: TACROLIMUS
     Indication: Colitis ulcerative
     Dosage: (3-6 MG/DAY) INTERMITTENTLY
     Route: 048
  15. TACROLIMUS [Concomitant]
     Active Substance: TACROLIMUS
     Dosage: 3 MILLIGRAM, QD
     Route: 048
  16. TACROLIMUS [Concomitant]
     Active Substance: TACROLIMUS
     Dosage: 6 MILLIGRAM, QD
     Route: 065
  17. TACROLIMUS [Concomitant]
     Active Substance: TACROLIMUS
     Dosage: 3 MILLIGRAM, QD
     Route: 048
  18. TACROLIMUS [Concomitant]
     Active Substance: TACROLIMUS
     Dosage: 3-6 MG/DAY
     Route: 048
  19. TOFACITINIB [Concomitant]
     Active Substance: TOFACITINIB
     Indication: Colitis ulcerative
     Dosage: 10 MILLIGRAM, QD
     Route: 048
  20. TOFACITINIB [Concomitant]
     Active Substance: TOFACITINIB
     Dosage: MAINTENANCE 10 MG ORALLY TWICE DAILY/EVERY 12 HOUR
     Route: 048
  21. TOFACITINIB [Concomitant]
     Active Substance: TOFACITINIB
     Dosage: 10 MILLIGRAM, BID
     Route: 048
  22. TOFACITINIB [Concomitant]
     Active Substance: TOFACITINIB
     Dosage: 0.5 MILLIGRAM, QD
     Route: 048
  23. TOFACITINIB [Concomitant]
     Active Substance: TOFACITINIB
     Dosage: 0.5 MILLIGRAM, QD
     Route: 048
  24. METHYLPREDNISOLONE [Concomitant]
     Active Substance: METHYLPREDNISOLONE
     Indication: Colitis ulcerative
     Dosage: HIGH-DOSE (60 MG INTRAVENOUSLY ONCE DAILY) / 60 MILLIGRAM, QD
     Route: 042

REACTIONS (14)
  - Colitis ulcerative [Unknown]
  - Colitis ulcerative [Recovered/Resolved]
  - Symptom recurrence [Unknown]
  - Skin lesion [Unknown]
  - Psoriasis [Unknown]
  - Dermatitis psoriasiform [Unknown]
  - Anaemia [Unknown]
  - Respiratory tract infection [Unknown]
  - Oral herpes [Unknown]
  - Drug ineffective [Unknown]
  - Drug ineffective for unapproved indication [Unknown]
  - Therapeutic product effect decreased [Unknown]
  - Off label use [Unknown]
  - Treatment failure [Unknown]
